FAERS Safety Report 17724308 (Version 1)
Quarter: 2020Q2

REPORT INFORMATION
  Report Type: Spontaneous
  Country: US (occurrence: US)
  Receive Date: 20200429
  Receipt Date: 20200429
  Transmission Date: 20200714
  Serious: Yes (Other)
  Sender: FDA-Public Use
  Company Number: US-PURDUE PHARMA-USA-2020-0152079

PATIENT
  Sex: Female

DRUGS (1)
  1. HYDROMORPHONE HCL (SIMILAR TO 19-892) [Suspect]
     Active Substance: HYDROMORPHONE HYDROCHLORIDE
     Indication: SPINAL OPERATION
     Dosage: UNK
     Route: 048
     Dates: start: 2015

REACTIONS (5)
  - Drug dependence [Unknown]
  - Insomnia [Unknown]
  - Post laminectomy syndrome [Unknown]
  - Pain [Unknown]
  - Euphoric mood [Unknown]

NARRATIVE: CASE EVENT DATE: 2015
